FAERS Safety Report 9155398 (Version 1)
Quarter: 2013Q1

REPORT INFORMATION
  Report Type: Spontaneous
  Country: US (occurrence: US)
  Receive Date: 20130311
  Receipt Date: 20130311
  Transmission Date: 20140127
  Serious: Yes (Other)
  Sender: FDA-Public Use
  Company Number: US-PFIZER INC-2013081053

PATIENT
  Age: 49 Year
  Sex: Female
  Weight: 83 kg

DRUGS (12)
  1. CHANTIX [Suspect]
     Indication: SMOKING CESSATION THERAPY
     Dosage: UNK
  2. CHANTIX [Suspect]
     Dosage: 0.5 MG, 1X/DAY
     Dates: start: 201212
  3. CHANTIX [Suspect]
     Dosage: 0.5 MG, 2X/DAY
  4. CHANTIX [Suspect]
     Dosage: 1 MG, 2X/DAY
  5. CHANTIX [Suspect]
     Dosage: 1.5 MG, 2X/DAY
     Dates: start: 20130201
  6. AZITHROMYCIN [Suspect]
     Indication: BRONCHITIS
     Dosage: 2 TABLETS OF 250 MG DAILY FOR FIRST DAY AND 1 TABLET OF 250 MG DAILY FOR NEXT FOUR DAYS
  7. IPRATROPIUM BROMIDE [Suspect]
     Indication: ASTHMA
     Dosage: UNK
  8. IPRATROPIUM BROMIDE [Suspect]
     Indication: BRONCHITIS
  9. ALBUTEROL SULFATE [Suspect]
     Indication: ASTHMA
     Dosage: UNK, 4X/DAY
  10. ALBUTEROL SULFATE [Suspect]
     Indication: BRONCHITIS
  11. QVAR [Suspect]
     Indication: ASTHMA
     Dosage: 80 UG, 2X/DAY
  12. QVAR [Suspect]
     Indication: BRONCHITIS

REACTIONS (8)
  - Bronchitis [Unknown]
  - Asthma [Unknown]
  - Dyspnoea [Unknown]
  - Malaise [Unknown]
  - Productive cough [Unknown]
  - Constipation [Unknown]
  - Nausea [Unknown]
  - Vomiting [Unknown]
